FAERS Safety Report 22972862 (Version 2)
Quarter: 2023Q4

REPORT INFORMATION
  Report Type: Report from Study
  Country: US (occurrence: US)
  Receive Date: 20230922
  Receipt Date: 20231028
  Transmission Date: 20240109
  Serious: Yes (Hospitalization, Other)
  Sender: FDA-Public Use
  Company Number: US-JNJFOC-20230936135

PATIENT
  Age: 55 Year
  Sex: Female

DRUGS (2)
  1. SPRAVATO [Suspect]
     Active Substance: ESKETAMINE
     Indication: Depression
     Dosage: CONFLICTINGLY REPORTED AS 30-AUG-2023
     Dates: start: 20230829
  2. SPRAVATO [Suspect]
     Active Substance: ESKETAMINE
     Indication: Depression
     Dosage: RECENT DOSE
     Dates: start: 20230911, end: 20230911

REACTIONS (8)
  - Mental status changes [Recovered/Resolved]
  - Respiratory distress [Recovered/Resolved]
  - Sedation [Recovered/Resolved]
  - Dissociation [Recovered/Resolved]
  - Blood potassium decreased [Unknown]
  - Laboratory test abnormal [Unknown]
  - Myalgia [Unknown]
  - Fatigue [Unknown]

NARRATIVE: CASE EVENT DATE: 20230911
